FAERS Safety Report 5950915-8 (Version None)
Quarter: 2008Q4

REPORT INFORMATION
  Report Type: 
  Country: None (occurrence: None)
  Receive Date: 20081110
  Receipt Date: 20081103
  Transmission Date: 20090506
  Serious: Yes (Other)
  Sender: FDA-Public Use
  Company Number: JPI-P-005278

PATIENT
  Age: 50 Year
  Sex: Female

DRUGS (2)
  1. XYREM [Suspect]
     Indication: NARCOLEPSY
     Dosage: ORAL
     Route: 048
     Dates: start: 20060101
  2. UNSPECIFIED DIABETES MELLITUS MEDICATIONS(DRUG USED IN DIABETES) [Concomitant]

REACTIONS (3)
  - FALL [None]
  - FRACTURE [None]
  - SOMNAMBULISM [None]
